FAERS Safety Report 5306804-5 (Version None)
Quarter: 2007Q2

REPORT INFORMATION
  Report Type: 
  Country: None (occurrence: None)
  Receive Date: 20070423
  Receipt Date: 20070423
  Transmission Date: 20071010
  Serious: Yes (Hospitalization)
  Sender: FDA-Public Use
  Company Number: None

PATIENT
  Age: 53 Year
  Sex: Female

DRUGS (3)
  1. ZELNORM [Suspect]
     Indication: IRRITABLE BOWEL SYNDROME
     Dosage: 6MG PO BID
     Route: 048
  2. LEVOTHROID [Concomitant]
  3. CLONIDINE [Concomitant]

REACTIONS (1)
  - LOSS OF CONSCIOUSNESS [None]
